FAERS Safety Report 4951189-7 (Version None)
Quarter: 2006Q1

REPORT INFORMATION
  Report Type: 
  Country: None (occurrence: None)
  Receive Date: 20060315
  Receipt Date: 20060224
  Transmission Date: 20060701
  Serious: Yes (Death)
  Sender: FDA-Public Use
  Company Number: DE200602005440

PATIENT
  Sex: Female
  Weight: 49 kg

DRUGS (2)
  1. FORTEO [Suspect]
     Dates: start: 20050812, end: 20050801
  2. FORTEO [Concomitant]

REACTIONS (1)
  - DEATH [None]
